FAERS Safety Report 5001903-X (Version None)
Quarter: 2006Q2

REPORT INFORMATION
  Report Type: 
  Country: None (occurrence: None)
  Receive Date: 20060515
  Receipt Date: 20050628
  Transmission Date: 20061013
  Serious: Yes (Death)
  Sender: FDA-Public Use
  Company Number: US-MERCK-0506USA04382

PATIENT
  Age: 53 Year
  Sex: Female

DRUGS (1)
  1. VIOXX [Suspect]
     Indication: OSTEOARTHRITIS
     Route: 048
     Dates: start: 20020625, end: 20040926

REACTIONS (1)
  - ARTERIOSCLEROSIS [None]
